FAERS Safety Report 5099795-6 (Version None)
Quarter: 2006Q3

REPORT INFORMATION
  Report Type: 
  Country: None (occurrence: None)
  Receive Date: 20060908
  Receipt Date: 20060828
  Transmission Date: 20061208
  Serious: Yes (Hospitalization)
  Sender: FDA-Public Use
  Company Number: TR-KINGPHARMUSA00001-K200601110

PATIENT
  Age: 3 Year
  Sex: Male

DRUGS (1)
  1. BICILLIN L-A [Suspect]
     Dosage: UNK, UNK
     Route: 030

REACTIONS (14)
  - ALANINE AMINOTRANSFERASE INCREASED [None]
  - ARTERIAL OCCLUSIVE DISEASE [None]
  - ASPARTATE AMINOTRANSFERASE INCREASED [None]
  - BLOOD CREATINE PHOSPHOKINASE INCREASED [None]
  - BLOOD LACTATE DEHYDROGENASE INCREASED [None]
  - ECCHYMOSIS [None]
  - EMBOLIA CUTIS MEDICAMENTOSA [None]
  - ERYTHEMA [None]
  - NECROSIS [None]
  - OEDEMA [None]
  - PAIN [None]
  - PALLOR [None]
  - PERIPHERAL COLDNESS [None]
  - SKIN DISCOLOURATION [None]
